FAERS Safety Report 10100983 (Version 1)
Quarter: 2014Q2

REPORT INFORMATION
  Report Type: Spontaneous
  Country: NL (occurrence: NL)
  Receive Date: 20140424
  Receipt Date: 20140424
  Transmission Date: 20141212
  Serious: Yes (Congenital Anomaly)
  Sender: FDA-Public Use
  Company Number: NL-JNJFOC-20140412726

PATIENT
  Sex: Male

DRUGS (4)
  1. CETIRIZINE [Suspect]
     Route: 064
  2. CETIRIZINE [Suspect]
     Indication: HYPERSENSITIVITY
     Route: 064
     Dates: start: 20131209, end: 2014
  3. FEXOFENADINE [Suspect]
     Indication: HYPERSENSITIVITY
     Route: 064
     Dates: start: 20120612, end: 2014
  4. TAVEGYL [Suspect]
     Indication: HYPERSENSITIVITY
     Route: 064
     Dates: start: 20140115, end: 2014

REACTIONS (2)
  - Hypoplastic left heart syndrome [Not Recovered/Not Resolved]
  - Foetal exposure during pregnancy [Recovered/Resolved]
